FAERS Safety Report 15483352 (Version 1)
Quarter: 2018Q4

REPORT INFORMATION
  Report Type: Spontaneous
  Country: US (occurrence: US)
  Receive Date: 20181010
  Receipt Date: 20181010
  Transmission Date: 20190205
  Serious: No
  Sender: FDA-Public Use
  Company Number: US-TARO-2018TAR00035

PATIENT
  Age: 84 Year
  Sex: Female
  Weight: 68.03 kg

DRUGS (3)
  1. LOSARTAN. [Concomitant]
     Active Substance: LOSARTAN
  2. MUPIROCIN OINTMENT USP 2% [Suspect]
     Active Substance: MUPIROCIN
     Indication: NASAL MUCOSAL DISORDER
     Dosage: ^VERY SMALL AMOUNT,^ UNK
     Route: 045
     Dates: start: 20180112
  3. DILTIAZEM. [Concomitant]
     Active Substance: DILTIAZEM

REACTIONS (4)
  - Product use in unapproved indication [Not Recovered/Not Resolved]
  - Incorrect route of product administration [Not Recovered/Not Resolved]
  - Throat irritation [Not Recovered/Not Resolved]
  - Nasal discomfort [Not Recovered/Not Resolved]

NARRATIVE: CASE EVENT DATE: 20180112
